FAERS Safety Report 6346139-5 (Version None)
Quarter: 2009Q3

REPORT INFORMATION
  Report Type: 
  Country: None (occurrence: None)
  Receive Date: 20090821
  Receipt Date: 20090529
  Transmission Date: 20100115
  Serious: No
  Sender: FDA-Public Use
  Company Number: 8047153

PATIENT
  Age: 50 Year
  Sex: Female

DRUGS (1)
  1. CIMZIA [Suspect]
     Dosage: 400 MG SC
     Route: 058
     Dates: start: 20090409

REACTIONS (8)
  - ABDOMINAL PAIN [None]
  - ARTHRALGIA [None]
  - DRUG EFFECT DECREASED [None]
  - LOCAL SWELLING [None]
  - NAUSEA [None]
  - PROCTALGIA [None]
  - RECTAL HAEMORRHAGE [None]
  - VOMITING [None]
